FAERS Safety Report 5733858-4 (Version None)
Quarter: 2008Q2

REPORT INFORMATION
  Report Type: 
  Country: None (occurrence: None)
  Receive Date: 20080509
  Receipt Date: 20080501
  Transmission Date: 20081010
  Serious: Yes (Hospitalization)
  Sender: FDA-Public Use
  Company Number: US-ELI_LILLY_AND_COMPANY-US200805000139

PATIENT
  Sex: Female

DRUGS (6)
  1. HUMATROPE [Suspect]
     Indication: HYPOPITUITARISM
     Dosage: UNK, UNKNOWN
     Dates: start: 20050101
  2. DOSTINEX [Concomitant]
     Dosage: UNK, UNKNOWN
  3. SYNTHROID [Concomitant]
     Dosage: UNK, UNKNOWN
  4. PREDNISONE TAB [Concomitant]
     Dosage: UNK, UNKNOWN
  5. FOSAMAX [Concomitant]
     Dosage: UNK, UNKNOWN
  6. DDAVP [Concomitant]
     Dosage: UNK, UNKNOWN

REACTIONS (2)
  - HOSPITALISATION [None]
  - IMMUNE SYSTEM DISORDER [None]
